FAERS Safety Report 8056140 (Version 3)
Quarter: 2012Q4

REPORT INFORMATION
  Report Type: 
  Country: US (occurrence: US)
  Receive Date: 20110727
  Receipt Date: 20120831
  Transmission Date: 20130627
  Serious: Yes (Hospitalization)
  Sender: FDA-Public Use
  Company Number: US-BAYER-2011-064151

PATIENT
  Age: 35 Year
  Sex: Female
  Weight: 58.96 kg

DRUGS (2)
  1. OCELLA [Suspect]
     Dosage: UNK
     Dates: start: 201005, end: 201010
  2. MOTRIN [Concomitant]
     Indication: PAIN
     Dosage: UNK
     Route: 048
     Dates: start: 2011

REACTIONS (5)
  - Pulmonary embolism [None]
  - Pain [None]
  - Emotional distress [None]
  - Dyspnoea [None]
  - Asthenia [None]
